FAERS Safety Report 7761632-6 (Version None)
Quarter: 2011Q3

REPORT INFORMATION
  Report Type: 
  Country: None (occurrence: None)
  Receive Date: 20110919
  Receipt Date: 20110919
  Transmission Date: 20111222
  Serious: Yes (Death)
  Sender: FDA-Public Use
  Company Number: None

PATIENT
  Sex: Female
  Weight: 72.5755 kg

DRUGS (4)
  1. OXYCODONE HCL [Concomitant]
  2. NEURONTIN [Concomitant]
  3. ATIVAN [Concomitant]
  4. XELODA [Suspect]
     Indication: BREAST CANCER
     Dosage: 1500MG BID PO
     Route: 048
     Dates: start: 20101011, end: 20110601

REACTIONS (1)
  - DEATH [None]
